FAERS Safety Report 4986049-9 (Version None)
Quarter: 2006Q2

REPORT INFORMATION
  Report Type: 
  Country: None (occurrence: None)
  Receive Date: 20060428
  Receipt Date: 20051028
  Transmission Date: 20061013
  Serious: Yes (Death)
  Sender: FDA-Public Use
  Company Number: 2005SE06206

PATIENT
  Age: 18103 Day
  Sex: Female
  Weight: 102 kg

DRUGS (7)
  1. SEROQUEL [Suspect]
     Indication: BIPOLAR I DISORDER
     Dosage: 100+200 MG DAILY
     Route: 048
     Dates: start: 20051018
  2. CITALOPRAM [Concomitant]
  3. LAMITROGEN [Concomitant]
  4. OXAZEPAM [Concomitant]
  5. ZOLPIDEM TARTRATE [Concomitant]
  6. METOCLOPRAMID [Concomitant]
  7. CHLORPROTHIXENE [Concomitant]

REACTIONS (2)
  - AORTIC ARTERIOSCLEROSIS [None]
  - AORTIC RUPTURE [None]
